FAERS Safety Report 8761506 (Version 2)
Quarter: 2012Q4

REPORT INFORMATION
  Report Type: 
  Country: JP (occurrence: JP)
  Receive Date: 20120830
  Receipt Date: 20120925
  Transmission Date: 20130627
  Serious: Yes (Hospitalization)
  Sender: FDA-Public Use
  Company Number: JP-009507513-1208JPN009968

PATIENT
  Age: 35 Year
  Sex: Female
  Weight: 47 kg

DRUGS (3)
  1. PREGNYL INTRAMUSCULAR 5,000U [Suspect]
     Indication: OVULATION INDUCTION
     Dosage: 5000 million IU, Once
     Route: 030
  2. CLOMIPHENE CITRATE [Suspect]
     Indication: OVULATION INDUCTION
     Dosage: 100 mg, qd
     Route: 048
  3. CLOMIPHENE CITRATE [Suspect]
     Dosage: 100 mg, qd
     Route: 048

REACTIONS (3)
  - Pericardial effusion [Recovered/Resolved]
  - Cardiac tamponade [Recovered/Resolved]
  - Ovarian hyperstimulation syndrome [Recovered/Resolved]
